FAERS Safety Report 19262447 (Version 1)
Quarter: 2021Q2

REPORT INFORMATION
  Report Type: Spontaneous
  Country: US (occurrence: US)
  Receive Date: 20210517
  Receipt Date: 20210517
  Transmission Date: 20210717
  Serious: No
  Sender: FDA-Public Use
  Company Number: US-B.I. PHARMACEUTICALS,INC./RIDGEFIELD-2020-US-034118

PATIENT
  Sex: Male

DRUGS (2)
  1. OFEV [Suspect]
     Active Substance: NINTEDANIB
     Indication: PRODUCT USED FOR UNKNOWN INDICATION
     Dosage: NR
     Dates: start: 2017, end: 202003
  2. OFEV [Suspect]
     Active Substance: NINTEDANIB
     Dosage: 100MG IN AM AND 150MG HS
     Dates: start: 202003

REACTIONS (3)
  - Diarrhoea [Not Recovered/Not Resolved]
  - Medication error [Unknown]
  - Abdominal pain upper [Not Recovered/Not Resolved]
